FAERS Safety Report 7575455-4 (Version None)
Quarter: 2011Q2

REPORT INFORMATION
  Report Type: 
  Country: None (occurrence: None)
  Receive Date: 20110627
  Receipt Date: 20110621
  Transmission Date: 20111010
  Serious: Yes (Death, Hospitalization)
  Sender: FDA-Public Use
  Company Number: US-CELGENEUS-163-21880-11062873

PATIENT
  Age: 82 Year
  Sex: Male

DRUGS (6)
  1. PROCRIT [Concomitant]
     Route: 065
     Dates: start: 20040601, end: 20090601
  2. SPIRIVA [Concomitant]
     Route: 055
  3. LEVOTHROID [Concomitant]
     Route: 065
  4. LASIX [Concomitant]
     Route: 065
  5. REVLIMID [Suspect]
     Dosage: 5 MILLIGRAM
     Route: 048
     Dates: start: 20090801, end: 20090101
  6. E-TAB [Concomitant]
     Route: 065

REACTIONS (5)
  - DECREASED APPETITE [None]
  - CHILLS [None]
  - UPPER RESPIRATORY TRACT INFECTION [None]
  - DEATH [None]
  - NO THERAPEUTIC RESPONSE [None]
